FAERS Safety Report 4928371-8 (Version None)
Quarter: 2006Q1

REPORT INFORMATION
  Report Type: 
  Country: None (occurrence: None)
  Receive Date: 20060223
  Receipt Date: 20060214
  Transmission Date: 20060701
  Serious: Yes (Death, Hospitalization)
  Sender: FDA-Public Use
  Company Number: 163-20785-03080541

PATIENT
  Age: 76 Year
  Sex: Male

DRUGS (10)
  1. THALOMID [Suspect]
     Indication: MULTIPLE MYELOMA
     Dosage: SEE IMAGE
     Route: 048
     Dates: start: 20050101, end: 20050701
  2. THALOMID [Suspect]
     Indication: MULTIPLE MYELOMA
     Dosage: SEE IMAGE
     Route: 048
     Dates: start: 20030715
  3. TOPROL-XL [Concomitant]
  4. ASPIRIN [Concomitant]
  5. CELEBREX [Concomitant]
  6. NEXIUM [Concomitant]
  7. TRICOR [Concomitant]
  8. PERCOCET [Concomitant]
  9. COUMADIN [Concomitant]
  10. DEXAMETHASONE [Concomitant]

REACTIONS (3)
  - DISEASE PROGRESSION [None]
  - MYOCARDIAL INFARCTION [None]
  - SPINAL COMPRESSION FRACTURE [None]
